FAERS Safety Report 5446412-9 (Version None)
Quarter: 2007Q3

REPORT INFORMATION
  Report Type: 
  Country: None (occurrence: None)
  Receive Date: 20070907
  Receipt Date: 20070831
  Transmission Date: 20080115
  Serious: Yes (Death, Life-Threatening, Hospitalization, Disabling, Other)
  Sender: FDA-Public Use
  Company Number: US-MERCK-0708USA02161

PATIENT
  Age: 61 Year
  Sex: Female

DRUGS (8)
  1. VYTORIN [Suspect]
     Indication: BLOOD CHOLESTEROL
     Route: 048
     Dates: start: 20050222, end: 20070806
  2. VYTORIN [Suspect]
     Route: 048
     Dates: start: 20040801, end: 20050221
  3. PRILOSEC [Concomitant]
     Route: 065
  4. SYNTHROID [Concomitant]
     Route: 065
  5. MICARDIS [Concomitant]
     Route: 065
  6. VIVELLE [Concomitant]
     Route: 065
  7. NEURONTIN [Concomitant]
     Route: 065
  8. ZOLOFT [Concomitant]
     Route: 065

REACTIONS (5)
  - ACUTE HEPATIC FAILURE [None]
  - ALPHA-1 ANTI-TRYPSIN DEFICIENCY [None]
  - BLOOD CREATINE PHOSPHOKINASE INCREASED [None]
  - HEPATOCELLULAR DAMAGE [None]
  - RENAL FAILURE [None]
